FAERS Safety Report 15644335 (Version 1)
Quarter: 2018Q4

REPORT INFORMATION
  Report Type: Spontaneous
  Country: ZA (occurrence: ZA)
  Receive Date: 20181121
  Receipt Date: 20181121
  Transmission Date: 20190205
  Serious: Yes (Other)
  Sender: FDA-Public Use
  Company Number: ZA-BAYER-2018-215310

PATIENT
  Sex: Male

DRUGS (2)
  1. BETAFERON [Suspect]
     Active Substance: INTERFERON BETA-1B
     Indication: METASTATIC MALIGNANT MELANOMA
     Dosage: HIGH DOSE
     Route: 058
  2. BETAFERON [Suspect]
     Active Substance: INTERFERON BETA-1B
     Indication: METASTASES TO LYMPH NODES

REACTIONS (3)
  - Product use in unapproved indication [None]
  - Off label use [None]
  - Metastatic malignant melanoma [None]
